FAERS Safety Report 5998304-4 (Version None)
Quarter: 2008Q4

REPORT INFORMATION
  Report Type: 
  Country: None (occurrence: None)
  Receive Date: 20081213
  Receipt Date: 20080627
  Transmission Date: 20090506
  Serious: No
  Sender: FDA-Public Use
  Company Number: US-AMGEN-KDL277738

PATIENT
  Sex: Male

DRUGS (4)
  1. ENBREL [Suspect]
     Indication: RHEUMATOID ARTHRITIS
     Route: 058
     Dates: start: 20020701
  2. ENBREL [Suspect]
     Indication: OSTEOARTHRITIS
  3. ENBREL [Suspect]
     Indication: REITER'S SYNDROME
  4. LEFLUNOMIDE [Concomitant]
     Dates: start: 20060101

REACTIONS (2)
  - HAEMARTHROSIS [None]
  - ROTATOR CUFF SYNDROME [None]
